FAERS Safety Report 5268547-6 (Version None)
Quarter: 2007Q1

REPORT INFORMATION
  Report Type: 
  Country: None (occurrence: None)
  Receive Date: 20070319
  Receipt Date: 20070307
  Transmission Date: 20070707
  Serious: Yes (Hospitalization, Other)
  Sender: FDA-Public Use
  Company Number: PHEH2007US02179

PATIENT
  Age: 56 Year
  Sex: Male

DRUGS (1)
  1. ZELNORM [Suspect]
     Indication: CONSTIPATION
     Dosage: 6 MG, BID
     Route: 048
     Dates: start: 20050801, end: 20070208

REACTIONS (25)
  - ABDOMINAL DISTENSION [None]
  - ABDOMINAL PAIN [None]
  - ABDOMINAL TENDERNESS [None]
  - ABNORMAL FAECES [None]
  - BARRETT'S OESOPHAGUS [None]
  - BIOPSY COLON ABNORMAL [None]
  - BOWEL SOUNDS ABNORMAL [None]
  - COLECTOMY [None]
  - COLITIS [None]
  - COLON ADENOMA [None]
  - COLONOSCOPY [None]
  - DIARRHOEA [None]
  - DRUG INEFFECTIVE [None]
  - HEART RATE INCREASED [None]
  - ILEITIS [None]
  - LARGE INTESTINE PERFORATION [None]
  - MUCOSAL INFLAMMATION [None]
  - MUCOUS STOOLS [None]
  - OCCULT BLOOD POSITIVE [None]
  - OESOPHAGEAL ULCER [None]
  - PNEUMATOSIS INTESTINALIS [None]
  - POLYP COLORECTAL [None]
  - RECTAL HAEMORRHAGE [None]
  - REFLUX OESOPHAGITIS [None]
  - X-RAY ABNORMAL [None]
